FAERS Safety Report 9301268 (Version 2)
Quarter: 2013Q4

REPORT INFORMATION
  Report Type: Spontaneous
  Country: RU (occurrence: RU)
  Receive Date: 20130521
  Receipt Date: 20131011
  Transmission Date: 20140711
  Serious: Yes (Other)
  Sender: FDA-Public Use
  Company Number: RU-GLAXOSMITHKLINE-B0892839A

PATIENT
  Age: 49 Year
  Sex: Female

DRUGS (5)
  1. PAZOPANIB [Suspect]
     Indication: UTERINE LEIOMYOSARCOMA
     Dosage: 800MG PER DAY
     Route: 048
     Dates: start: 20130401
  2. WARFARIN [Concomitant]
     Indication: THROMBOSIS
     Dosage: 2TABS PER DAY
     Dates: start: 2013
  3. IFOSPHAMIDE [Concomitant]
  4. TRABECTEDIN [Concomitant]
  5. ANTHRACYCLINES [Concomitant]

REACTIONS (1)
  - Disease progression [Not Recovered/Not Resolved]
